FAERS Safety Report 16368706 (Version 2)
Quarter: 2019Q2

REPORT INFORMATION
  Report Type: Spontaneous
  Country: PT (occurrence: PT)
  Receive Date: 20190529
  Receipt Date: 20190607
  Transmission Date: 20190711
  Serious: Yes (Other)
  Sender: FDA-Public Use
  Company Number: PT-MYLANLABS-2019M1049891

PATIENT
  Age: 34 Year
  Sex: Female

DRUGS (3)
  1. DOCETAXEL. [Suspect]
     Active Substance: DOCETAXEL
     Indication: BREAST CANCER METASTATIC
     Dosage: 75 MILLIGRAM/SQ. METER (3 PER WEEK)
     Route: 042
     Dates: start: 20180309
  2. PERJETA [Suspect]
     Active Substance: PERTUZUMAB
     Indication: BREAST CANCER METASTATIC
     Dosage: 840 MILLIGRAM, 3 PER WEEK (DOSE INICIAL DE 840 MG, SEGUIDA DE DOSE DE 420 MG A CADA 3 SEMANAS)
     Route: 042
     Dates: start: 20180309
  3. TRASTUZUMAB. [Suspect]
     Active Substance: TRASTUZUMAB
     Indication: BREAST CANCER METASTATIC
     Dosage: 8 MILLIGRAM/KILOGRAM, 3 PER WEEK (DOSE INICIAL 8 MG/KG, SEGUIDA DE DOSE DE MANUTEN??O DE 6 MG/KG)
     Route: 042
     Dates: start: 20180309

REACTIONS (5)
  - Alopecia [Unknown]
  - Lacrimal disorder [Unknown]
  - Asthenia [Unknown]
  - Onycholysis [Unknown]
  - Mucosal inflammation [Unknown]

NARRATIVE: CASE EVENT DATE: 20180309
